FAERS Safety Report 12882703 (Version 1)
Quarter: 2016Q4

REPORT INFORMATION
  Report Type: Spontaneous
  Country: US (occurrence: US)
  Receive Date: 20161025
  Receipt Date: 20161025
  Transmission Date: 20170207
  Serious: Yes (Hospitalization)
  Sender: FDA-Public Use
  Company Number: US-IPCA LABORATORIES LIMITED-IPC201610-000890

PATIENT
  Age: 63 Year
  Sex: Female

DRUGS (12)
  1. ENOXAPARIN SODIUM. [Suspect]
     Active Substance: ENOXAPARIN SODIUM
  2. HEPARIN [Concomitant]
     Active Substance: HEPARIN SODIUM
  3. FUROSEMIDE. [Concomitant]
     Active Substance: FUROSEMIDE
  4. GABAPENTIN. [Concomitant]
     Active Substance: GABAPENTIN
  5. FENTANYL. [Concomitant]
     Active Substance: FENTANYL
  6. ASPIRIN. [Suspect]
     Active Substance: ASPIRIN
     Indication: CEREBROVASCULAR ACCIDENT
  7. AMIODARONE [Concomitant]
     Active Substance: AMIODARONE
  8. METOPROLOL. [Concomitant]
     Active Substance: METOPROLOL
  9. WARFARIN [Suspect]
     Active Substance: WARFARIN
  10. MIDAZOLAM [Concomitant]
     Active Substance: MIDAZOLAM\MIDAZOLAM HYDROCHLORIDE
     Indication: SEDATION
     Route: 042
  11. METHYLPREDNISOLONE ACETATE. [Suspect]
     Active Substance: METHYLPREDNISOLONE ACETATE
  12. PREDNISONE. [Concomitant]
     Active Substance: PREDNISONE

REACTIONS (2)
  - Extradural haematoma [Recovered/Resolved with Sequelae]
  - Paraplegia [Recovered/Resolved with Sequelae]
